FAERS Safety Report 24139973 (Version 1)
Quarter: 2024Q3

REPORT INFORMATION
  Report Type: Spontaneous
  Country: US (occurrence: US)
  Receive Date: 20240726
  Receipt Date: 20240726
  Transmission Date: 20241017
  Serious: Yes (Hospitalization, Other)
  Sender: BRISTOL MYERS SQUIBB
  Company Number: US-BRISTOL-MYERS SQUIBB COMPANY-2024-113983

PATIENT
  Age: 30 Year
  Sex: Female

DRUGS (2)
  1. ZEPOSIA [Suspect]
     Active Substance: OZANIMOD HYDROCHLORIDE
     Indication: Multiple sclerosis
     Route: 048
     Dates: start: 202305
  2. XOLAIR [Concomitant]
     Active Substance: OMALIZUMAB
     Dosage: SD PFS

REACTIONS (4)
  - Multiple sclerosis relapse [Unknown]
  - Stress [Unknown]
  - COVID-19 [Recovered/Resolved]
  - Nephrolithiasis [Recovered/Resolved]
